FAERS Safety Report 12331210 (Version 1)
Quarter: 2016Q2

REPORT INFORMATION
  Report Type: Spontaneous
  Country: US (occurrence: None)
  Receive Date: 20160503
  Receipt Date: 20160503
  Transmission Date: 20160815
  Serious: Yes (Life-Threatening, Hospitalization)
  Sender: FDA-Public Use
  Company Number: None

PATIENT
  Age: 67 Year
  Sex: Male
  Weight: 76.2 kg

DRUGS (3)
  1. WARFARIN [Suspect]
     Active Substance: WARFARIN
     Indication: ATRIAL FIBRILLATION
     Dosage: MG EVERY DAY PO
     Route: 048
     Dates: start: 19920301
  2. WARFARIN [Suspect]
     Active Substance: WARFARIN
     Indication: AORTIC VALVE REPLACEMENT
     Dosage: MG EVERY DAY PO
     Route: 048
     Dates: start: 19920301
  3. WARFARIN [Suspect]
     Active Substance: WARFARIN
     Indication: MITRAL VALVE REPLACEMENT
     Dosage: MG EVERY DAY PO
     Route: 048
     Dates: start: 19920301

REACTIONS (4)
  - Hypovolaemic shock [None]
  - Haemorrhagic arteriovenous malformation [None]
  - Gastrointestinal arteriovenous malformation [None]
  - Haemoglobin decreased [None]

NARRATIVE: CASE EVENT DATE: 20160221
